FAERS Safety Report 8603767-1 (Version None)
Quarter: 2012Q3

REPORT INFORMATION
  Report Type: 
  Country: None (occurrence: None)
  Receive Date: 20120817
  Receipt Date: 20120807
  Transmission Date: 20120928
  Serious: No
  Sender: FDA-Public Use
  Company Number: US-ASTRAZENECA-2010SE50519

PATIENT
  Age: 66 Year
  Sex: Female

DRUGS (7)
  1. OMEPRAZOLE [Suspect]
     Dosage: PRILOSEC
     Route: 048
  2. NEXIUM [Suspect]
     Route: 048
  3. OMEPRAZOLE [Suspect]
     Dosage: OMEPRAZOLE
     Route: 048
  4. NEXIUM [Suspect]
     Route: 048
  5. NEXIUM [Suspect]
     Route: 048
  6. NEXIUM [Suspect]
     Route: 048
  7. NEXIUM [Suspect]
     Route: 048

REACTIONS (10)
  - CHOKING SENSATION [None]
  - MALAISE [None]
  - ABDOMINAL DISCOMFORT [None]
  - NAUSEA [None]
  - CONDITION AGGRAVATED [None]
  - ABDOMINAL PAIN UPPER [None]
  - DIARRHOEA [None]
  - DIZZINESS [None]
  - INTENTIONAL DRUG MISUSE [None]
  - DRUG INEFFECTIVE [None]
